FAERS Safety Report 8334174-7 (Version None)
Quarter: 2012Q2

REPORT INFORMATION
  Report Type: 
  Country: None (occurrence: None)
  Receive Date: 20120503
  Receipt Date: 20120430
  Transmission Date: 20120825
  Serious: Yes (Other)
  Sender: FDA-Public Use
  Company Number: GB-GLAXOSMITHKLINE-B0798927A

PATIENT
  Age: 52 Year
  Sex: Male

DRUGS (6)
  1. MUCODYNE [Concomitant]
  2. DIPYRIDAMOL [Concomitant]
  3. FLUTICASONE PROPIONATE/SALMETEROL [Concomitant]
  4. SPIRIVA [Concomitant]
  5. ALBUTEROL [Concomitant]
  6. NICOTINE [Suspect]
     Indication: NICOTINE DEPENDENCE
     Route: 062
     Dates: start: 20120416, end: 20120419

REACTIONS (2)
  - HYPOAESTHESIA [None]
  - APPLICATION SITE PAIN [None]
